FAERS Safety Report 6740696-2 (Version None)
Quarter: 2010Q2

REPORT INFORMATION
  Report Type: 
  Country: None (occurrence: None)
  Receive Date: 20100521
  Receipt Date: 20100510
  Transmission Date: 20101027
  Serious: Yes (Death)
  Sender: FDA-Public Use
  Company Number: 7004507

PATIENT
  Age: 64 Year
  Sex: Male

DRUGS (1)
  1. SAIZEN [Suspect]
     Indication: ELDERLY
     Dosage: 8 MG, 1 IN 1 D, SUBCUTANEOUS
     Route: 058
     Dates: start: 20050401, end: 20091001

REACTIONS (1)
  - OFF LABEL USE [None]
